FAERS Safety Report 11535081 (Version 1)
Quarter: 2015Q3

REPORT INFORMATION
  Report Type: Spontaneous
  Country: US (occurrence: None)
  Receive Date: 20150921
  Receipt Date: 20150921
  Transmission Date: 20151125
  Serious: Yes (Disabling, Other)
  Sender: FDA-Public Use
  Company Number: None

PATIENT
  Age: 56 Year
  Sex: Female
  Weight: 61.24 kg

DRUGS (1)
  1. OTEZLA [Suspect]
     Active Substance: APREMILAST
     Indication: PSORIATIC ARTHROPATHY
     Dosage: 2
     Route: 048
     Dates: start: 20150423, end: 20150523

REACTIONS (4)
  - Drug ineffective [None]
  - Headache [None]
  - Nausea [None]
  - Alopecia [None]

NARRATIVE: CASE EVENT DATE: 20150525
